FAERS Safety Report 9787576 (Version 2)
Quarter: 2013Q4

REPORT INFORMATION
  Report Type: Spontaneous
  Country: None (occurrence: US)
  Receive Date: 20131230
  Receipt Date: 20131230
  Transmission Date: 20140711
  Serious: Yes (Other)
  Sender: FDA-Public Use
  Company Number: US-ACCORD-020982

PATIENT
  Age: 18 Year
  Sex: 0

DRUGS (3)
  1. ETOPOSIDE [Suspect]
     Indication: ACUTE LYMPHOCYTIC LEUKAEMIA
     Dosage: # PRIOR 3 THERAPY?COURSES
     Route: 042
  2. CYCLOPHOSPHAMIDE [Suspect]
     Indication: ACUTE LYMPHOCYTIC LEUKAEMIA
     Dosage: #PRIOR THERAPY COURSES 3
     Route: 042
  3. CLOFARABINE [Suspect]
     Indication: ACUTE LYMPHOCYTIC LEUKAEMIA
     Dosage: #PRIOR THERAPY COURSES 3
     Route: 042

REACTIONS (3)
  - Sinusitis [Unknown]
  - Rash [Unknown]
  - Off label use [Unknown]
